FAERS Safety Report 11643954 (Version 3)
Quarter: 2015Q4

REPORT INFORMATION
  Report Type: Spontaneous
  Country: FR (occurrence: FR)
  Receive Date: 20151020
  Receipt Date: 20151215
  Transmission Date: 20160304
  Serious: Yes (Other)
  Sender: FDA-Public Use
  Company Number: FR-009507513-1510FRA009064

PATIENT
  Age: 38 Year
  Sex: Female

DRUGS (9)
  1. INNOHEP [Concomitant]
     Active Substance: TINZAPARIN SODIUM
  2. KEYTRUDA [Suspect]
     Active Substance: PEMBROLIZUMAB
     Dosage: 112 MG, QD
     Route: 042
     Dates: start: 20150703, end: 20150703
  3. DOLIPRANE [Concomitant]
     Active Substance: ACETAMINOPHEN
     Indication: PREMEDICATION
     Dosage: 1000 MG, QD
     Route: 048
     Dates: start: 20150821, end: 20150821
  4. POLARAMINE [Concomitant]
     Active Substance: DEXCHLORPHENIRAMINE MALEATE
     Indication: PREMEDICATION
     Dosage: 25 MG, QD
     Route: 042
     Dates: start: 20150821, end: 20150821
  5. KEYTRUDA [Suspect]
     Active Substance: PEMBROLIZUMAB
     Indication: METASTATIC MALIGNANT MELANOMA
     Dosage: 112 MG, QD
     Route: 042
     Dates: start: 20150821, end: 20150821
  6. LAMICTAL [Concomitant]
     Active Substance: LAMOTRIGINE
  7. URBANYL [Concomitant]
     Active Substance: CLOBAZAM
  8. VENTOLIN [Concomitant]
     Active Substance: ALBUTEROL SULFATE
  9. KEYTRUDA [Suspect]
     Active Substance: PEMBROLIZUMAB
     Dosage: 112 MG, QD
     Route: 042
     Dates: start: 20150724, end: 20150724

REACTIONS (2)
  - Eosinophilia [Not Recovered/Not Resolved]
  - Pancreatitis [Not Recovered/Not Resolved]

NARRATIVE: CASE EVENT DATE: 20150909
